FAERS Safety Report 14078882 (Version 2)
Quarter: 2017Q4

REPORT INFORMATION
  Report Type: Spontaneous
  Country: US (occurrence: US)
  Receive Date: 20171012
  Receipt Date: 20171108
  Transmission Date: 20180321
  Serious: No
  Sender: FDA-Public Use
  Company Number: US-PFIZER INC-2017436891

PATIENT
  Age: 61 Year
  Sex: Male

DRUGS (1)
  1. ADVIL [Suspect]
     Active Substance: IBUPROFEN
     Indication: NEUROPATHY PERIPHERAL
     Dosage: 2- PILLS 1X
     Route: 048
     Dates: start: 20171002, end: 2017

REACTIONS (4)
  - Intentional product misuse [Unknown]
  - Product use complaint [Recovered/Resolved]
  - Foreign body in respiratory tract [Recovered/Resolved]
  - Dysphagia [Recovered/Resolved]

NARRATIVE: CASE EVENT DATE: 20171002
